FAERS Safety Report 18617856 (Version 1)
Quarter: 2020Q4

REPORT INFORMATION
  Report Type: Spontaneous
  Country: GB (occurrence: GB)
  Receive Date: 20201215
  Receipt Date: 20201215
  Transmission Date: 20210114
  Serious: Yes (Other)
  Sender: FDA-Public Use
  Company Number: GB-ACCORD-210836

PATIENT
  Age: 70 Year
  Sex: Female
  Weight: 48 kg

DRUGS (2)
  1. CODEINE PHOSPHATE/PARACETAMOL [Concomitant]
     Active Substance: ACETAMINOPHEN\CODEINE PHOSPHATE
     Dosage: TAKE 1 OR 2 4 TIMES/DAY
     Dates: start: 20201026, end: 20201107
  2. AMITRIPTYLINE [Suspect]
     Active Substance: AMITRIPTYLINE
     Indication: PRODUCT USED FOR UNKNOWN INDICATION
     Route: 048
     Dates: start: 20201103, end: 20201120

REACTIONS (2)
  - Arrhythmia [Unknown]
  - Ventricular extrasystoles [Unknown]

NARRATIVE: CASE EVENT DATE: 20201120
